FAERS Safety Report 10732110 (Version 2)
Quarter: 2015Q1

REPORT INFORMATION
  Report Type: Spontaneous
  Country: FI (occurrence: FI)
  Receive Date: 20150123
  Receipt Date: 20150212
  Transmission Date: 20150721
  Serious: Yes (Other)
  Sender: FDA-Public Use
  Company Number: FI-ROCHE-1525376

PATIENT
  Age: 63 Year
  Sex: Male

DRUGS (5)
  1. ATORVASTATIN [Concomitant]
     Active Substance: ATORVASTATIN
     Route: 065
  2. AMOXAPINE. [Concomitant]
     Active Substance: AMOXAPINE
     Dosage: 1 TO 3 TIMES DAILY.
     Route: 065
  3. LOSARTAN [Concomitant]
     Active Substance: LOSARTAN
     Route: 065
  4. VENLAFAXINE [Concomitant]
     Active Substance: VENLAFAXINE HYDROCHLORIDE
     Route: 065
  5. XELODA [Suspect]
     Active Substance: CAPECITABINE
     Indication: COLORECTAL CANCER
     Route: 065
     Dates: start: 20140217, end: 20140609

REACTIONS (2)
  - Gastrointestinal necrosis [Unknown]
  - Suture related complication [Recovered/Resolved]

NARRATIVE: CASE EVENT DATE: 201406
